FAERS Safety Report 11282754 (Version 2)
Quarter: 2015Q3

REPORT INFORMATION
  Report Type: Report from Study
  Country: DE (occurrence: DE)
  Receive Date: 20150720
  Receipt Date: 20150803
  Transmission Date: 20151125
  Serious: Yes (Hospitalization)
  Sender: FDA-Public Use
  Company Number: DE-PFIZER INC-2015225248

PATIENT
  Age: 55 Year
  Sex: Male
  Weight: 100 kg

DRUGS (6)
  1. RITUXIMAB [Suspect]
     Active Substance: RITUXIMAB
     Dosage: 862.5 MG, DAILY
     Dates: start: 20150313
  2. CARBOPLATIN. [Suspect]
     Active Substance: CARBOPLATIN
     Dosage: 600 MG, DAILY
     Dates: start: 20150507, end: 20150618
  3. CISPLATIN. [Suspect]
     Active Substance: CISPLATIN
     Dosage: 236 MG, DAILY
     Dates: start: 20150314
  4. TEMSIROLIMUS [Suspect]
     Active Substance: TEMSIROLIMUS
     Indication: B-CELL LYMPHOMA
     Dosage: CYCLE 4: 25 MG/INFUSION ON DAY 1 AND DAY 8
     Dates: start: 20150312
  5. CYTARABINE. [Suspect]
     Active Substance: CYTARABINE
     Dosage: 4600 MG, UNK
     Dates: start: 20150315
  6. DEXAMETHASONE. [Suspect]
     Active Substance: DEXAMETHASONE
     Dosage: 40 MG, UNK
     Dates: start: 20150314

REACTIONS (1)
  - Pneumonia [Not Recovered/Not Resolved]

NARRATIVE: CASE EVENT DATE: 20150703
